FAERS Safety Report 21918850 (Version 2)
Quarter: 2023Q1

REPORT INFORMATION
  Report Type: Spontaneous
  Country: US (occurrence: US)
  Receive Date: 20230127
  Receipt Date: 20230130
  Transmission Date: 20230418
  Serious: No
  Sender: FDA-Public Use
  Company Number: US-JNJFOC-20230144736

PATIENT
  Age: 63 Year
  Sex: Male

DRUGS (1)
  1. ERLEADA [Suspect]
     Active Substance: APALUTAMIDE
     Indication: Prostate cancer
     Route: 048
     Dates: start: 2020

REACTIONS (4)
  - Hot flush [Unknown]
  - Depression [Unknown]
  - Cognitive disorder [Unknown]
  - Fatigue [Unknown]
